FAERS Safety Report 5812695-6 (Version None)
Quarter: 2008Q3

REPORT INFORMATION
  Report Type: 
  Country: None (occurrence: None)
  Receive Date: 20080711
  Receipt Date: 20080626
  Transmission Date: 20090109
  Serious: Yes (Other)
  Sender: FDA-Public Use
  Company Number: TRP_05796_2008

PATIENT
  Sex: Male
  Weight: 86.1834 kg

DRUGS (10)
  1. INFERGEN [Suspect]
     Indication: HEPATITIS C
     Dosage: (DAILY SUBCUTANEOUS), (15 UG 1X/WEEK SUBCUTANEOUS)
     Route: 058
     Dates: start: 20080101, end: 20080201
  2. INFERGEN [Suspect]
     Indication: HEPATITIS C
     Dosage: (DAILY SUBCUTANEOUS), (15 UG 1X/WEEK SUBCUTANEOUS)
     Route: 058
     Dates: start: 20080612
  3. RIBAVIRIN [Suspect]
     Indication: HEPATITIS C
     Dosage: (600 MG BID ORAL)
     Route: 048
     Dates: start: 20080501
  4. HUMALOG [Concomitant]
  5. HUMULIN 70/30 [Concomitant]
  6. LISINOPRIL [Concomitant]
  7. LYRICA [Concomitant]
  8. NORCO [Concomitant]
  9. GLUCOTROL [Concomitant]
  10. PRILOSEC [Concomitant]

REACTIONS (4)
  - DRUG INEFFECTIVE [None]
  - EXPIRED DRUG ADMINISTERED [None]
  - NAUSEA [None]
  - ROTATOR CUFF REPAIR [None]
